FAERS Safety Report 24733826 (Version 3)
Quarter: 2025Q3

REPORT INFORMATION
  Report Type: Spontaneous
  Country: US (occurrence: US)
  Receive Date: 20241214
  Receipt Date: 20250930
  Transmission Date: 20251021
  Serious: No
  Sender: SANOFI AVENTIS
  Company Number: US-SA-2024SA368434

PATIENT
  Age: 55 Year
  Sex: Female
  Weight: 86.36 kg

DRUGS (7)
  1. KEVZARA [Suspect]
     Active Substance: SARILUMAB
     Indication: Rheumatoid arthritis
     Dosage: 200 MG, QOW
     Route: 058
     Dates: start: 20241016
  2. SUPER MULTIPLE [Concomitant]
  3. CALCIUM [Concomitant]
     Active Substance: CALCIUM
  4. VITAMIN B COMPLEX [Concomitant]
     Active Substance: CYANOCOBALAMIN\DEXPANTHENOL\NIACINAMIDE\PYRIDOXINE HYDROCHLORIDE\RIBOFLAVIN 5^-PHOSPHATE SODIUM\THIA
  5. NON ASPIRIN [Concomitant]
  6. METHOTREXATE [Concomitant]
     Active Substance: METHOTREXATE
  7. PREDNISONE [Concomitant]
     Active Substance: PREDNISONE

REACTIONS (4)
  - Pain [Not Recovered/Not Resolved]
  - Drug effect less than expected [Not Recovered/Not Resolved]
  - Loss of personal independence in daily activities [Not Recovered/Not Resolved]
  - Condition aggravated [Not Recovered/Not Resolved]

NARRATIVE: CASE EVENT DATE: 20240101
